FAERS Safety Report 7536145 (Version 2)
Quarter: 2013Q3

REPORT INFORMATION
  Report Type: Spontaneous
  Country: US (occurrence: US)
  Receive Date: 20100811
  Receipt Date: 20130906
  Transmission Date: 20140515
  Serious: Yes (Hospitalization)
  Sender: FDA-Public Use
  Company Number: US-RANBAXY-2010US-36614

PATIENT
  Age: 24 Month
  Sex: Male

DRUGS (2)
  1. PHENOBARBITAL [Suspect]
     Indication: FEBRILE CONVULSION
     Dosage: UNK
     Route: 065
  2. PHENOBARBITAL [Suspect]
     Dosage: INCREASED TO 60 MG PER DAY
     Route: 065

REACTIONS (1)
  - Drug reaction with eosinophilia and systemic symptoms [Recovered/Resolved]
